FAERS Safety Report 7632389-4 (Version None)
Quarter: 2011Q3

REPORT INFORMATION
  Report Type: 
  Country: None (occurrence: None)
  Receive Date: 20110725
  Receipt Date: 20100819
  Transmission Date: 20111222
  Serious: Yes (Other)
  Sender: FDA-Public Use
  Company Number: US-BRISTOL-MYERS SQUIBB COMPANY-15247174

PATIENT
  Age: 68 Year
  Sex: Female
  Weight: 81 kg

DRUGS (6)
  1. COUMADIN [Suspect]
  2. SIMVASTATIN [Concomitant]
  3. CALCIUM CARBONATE [Concomitant]
  4. TOPROL-XL [Concomitant]
  5. MULTI-VITAMIN [Concomitant]
  6. ZESTRIL [Concomitant]

REACTIONS (1)
  - INTERNATIONAL NORMALISED RATIO DECREASED [None]
